FAERS Safety Report 10362725 (Version 1)
Quarter: 2014Q3

REPORT INFORMATION
  Report Type: Spontaneous
  Country: US (occurrence: US)
  Receive Date: 20140805
  Receipt Date: 20140805
  Transmission Date: 20150326
  Serious: No
  Sender: FDA-Public Use
  Company Number: US-ASTRAZENECA-2014SE54626

PATIENT
  Sex: Male
  Weight: 87.1 kg

DRUGS (3)
  1. COLOSTAPOL [Concomitant]
     Indication: COLITIS
  2. METHSCOPOLAMINE [Concomitant]
     Active Substance: METHSCOPOLAMINE\METHSCOPOLAMINE BROMIDE
     Indication: DIARRHOEA
  3. BUDESONIDE. [Suspect]
     Active Substance: BUDESONIDE
     Indication: COLITIS
     Route: 048

REACTIONS (2)
  - Muscle spasms [Unknown]
  - Intentional product misuse [Unknown]
